FAERS Safety Report 10229081 (Version 1)
Quarter: 2014Q2

REPORT INFORMATION
  Report Type: Spontaneous
  Country: GB (occurrence: GB)
  Receive Date: 20140610
  Receipt Date: 20140610
  Transmission Date: 20141212
  Serious: Yes (Hospitalization, Other)
  Sender: FDA-Public Use
  Company Number: GB-JNJFOC-20140600034

PATIENT
  Age: 78 Year
  Sex: Male
  Weight: 84.7 kg

DRUGS (9)
  1. MICONAZOLE [Suspect]
     Route: 048
  2. MICONAZOLE [Suspect]
     Indication: ORAL CANDIDIASIS
     Route: 048
     Dates: start: 20140124
  3. ATORVASTATIN [Concomitant]
     Route: 065
  4. WARFARIN [Concomitant]
     Route: 065
  5. FERROUS FUMARATE [Concomitant]
     Route: 065
  6. FUROSEMIDE [Concomitant]
     Route: 065
  7. NOVOMIX [Concomitant]
     Route: 065
  8. ADCAL-D3 [Concomitant]
     Route: 065
  9. BISOPROLOL [Concomitant]
     Route: 065

REACTIONS (2)
  - International normalised ratio increased [Recovered/Resolved]
  - Upper gastrointestinal haemorrhage [Unknown]
